FAERS Safety Report 5892233-2 (Version None)
Quarter: 2008Q3

REPORT INFORMATION
  Report Type: 
  Country: None (occurrence: None)
  Receive Date: 20080919
  Receipt Date: 20080905
  Transmission Date: 20090109
  Serious: Yes (Other)
  Sender: FDA-Public Use
  Company Number: 2008-183257-NL

PATIENT
  Sex: Female

DRUGS (1)
  1. IMPLANON [Suspect]
     Indication: CONTRACEPTION
     Dosage: NI SUBDERMAL, UNKNOWN
     Route: 059

REACTIONS (2)
  - ABORTION SPONTANEOUS [None]
  - PREGNANCY ON CONTRACEPTIVE [None]
